FAERS Safety Report 4454337-0 (Version None)
Quarter: 2004Q3

REPORT INFORMATION
  Report Type: 
  Country: None (occurrence: None)
  Receive Date: 20040920
  Receipt Date: 20040521
  Transmission Date: 20050211
  Serious: Yes (Other)
  Sender: FDA-Public Use
  Company Number: GB-MERCK-0405GBR00172

PATIENT
  Age: 72 Year
  Sex: Male
  Weight: 90 kg

DRUGS (2)
  1. ZETIA [Suspect]
     Indication: HIGH DENSITY LIPOPROTEIN INCREASED
     Route: 048
     Dates: start: 20030915, end: 20040130
  2. STATIN (UNSPECIFIED) [Concomitant]
     Route: 065

REACTIONS (1)
  - GLYCOSYLATED HAEMOGLOBIN INCREASED [None]
